FAERS Safety Report 14840078 (Version 3)
Quarter: 2018Q2

REPORT INFORMATION
  Report Type: Spontaneous
  Country: FR (occurrence: FR)
  Receive Date: 20180503
  Receipt Date: 20180606
  Transmission Date: 20180711
  Serious: Yes (Death)
  Sender: FDA-Public Use
  Company Number: FR-TEVA-2018-FR-887591

PATIENT
  Age: 56 Year
  Sex: Male

DRUGS (4)
  1. BROMAZEPAM [Suspect]
     Active Substance: BROMAZEPAM
     Route: 065
  2. LAROXYL [Suspect]
     Active Substance: AMITRIPTYLINE HYDROCHLORIDE
     Route: 065
  3. TRAMADOL BASE [Suspect]
     Active Substance: TRAMADOL
     Route: 065
  4. OXYCODONE [Suspect]
     Active Substance: OXYCODONE
     Route: 065

REACTIONS (2)
  - Death [Fatal]
  - Malaise [Fatal]

NARRATIVE: CASE EVENT DATE: 2017
